FAERS Safety Report 19437228 (Version 1)
Quarter: 2021Q2

REPORT INFORMATION
  Report Type: Spontaneous
  Country: US (occurrence: US)
  Receive Date: 20210619
  Receipt Date: 20210619
  Transmission Date: 20210717
  Serious: No
  Sender: FDA-Public Use
  Company Number: US-ASTRAZENECA-2021A508884

PATIENT
  Sex: Female

DRUGS (2)
  1. SYMBICORT [Concomitant]
     Active Substance: BUDESONIDE\FORMOTEROL FUMARATE DIHYDRATE
     Indication: ASTHMA
     Dosage: 160 MG 2 PUFFS BID
     Route: 055
  2. BREZTRI AEROSPHERE [Suspect]
     Active Substance: BUDESONIDE\FORMOTEROL\GLYCOPYRRONIUM
     Indication: ASTHMA
     Dosage: 160 MCG 2 PUFFS EVERY 12 HOURS
     Route: 055

REACTIONS (3)
  - Dyspnoea [Recovering/Resolving]
  - Device delivery system issue [Recovering/Resolving]
  - Incorrect dose administered by device [Recovering/Resolving]

NARRATIVE: CASE EVENT DATE: 20210604
